FAERS Safety Report 13413737 (Version 3)
Quarter: 2019Q3

REPORT INFORMATION
  Report Type: Spontaneous
  Country: US (occurrence: US)
  Receive Date: 20170406
  Receipt Date: 20190726
  Transmission Date: 20191004
  Serious: No
  Sender: FDA-Public Use
  Company Number: US-JNJFOC-20170313981

PATIENT
  Sex: Male

DRUGS (7)
  1. RISPERIDONE. [Suspect]
     Active Substance: RISPERIDONE
     Route: 048
     Dates: start: 20080307, end: 201012
  2. RISPERIDONE. [Suspect]
     Active Substance: RISPERIDONE
     Indication: AUTISM SPECTRUM DISORDER
     Route: 048
     Dates: start: 20071002, end: 20080108
  3. RISPERIDONE. [Suspect]
     Active Substance: RISPERIDONE
     Indication: AUTISM SPECTRUM DISORDER
     Dosage: IN VARYING DOSE OF 0.25 MG AND 5 MG
     Route: 048
     Dates: start: 20080730, end: 20131021
  4. RISPERIDONE. [Suspect]
     Active Substance: RISPERIDONE
     Indication: PRODUCT USED FOR UNKNOWN INDICATION
     Route: 048
  5. RISPERIDONE. [Suspect]
     Active Substance: RISPERIDONE
     Route: 048
     Dates: start: 20110513
  6. RISPERIDONE. [Suspect]
     Active Substance: RISPERIDONE
     Dosage: DOSE: 0.25 MG AND AN UNSPECIFIED DOSE
     Route: 048
     Dates: start: 20140826, end: 20141117
  7. RISPERIDONE. [Suspect]
     Active Substance: RISPERIDONE
     Dosage: DOSE: 0.25 MG AND AN UNSPECIFIED DOSE
     Route: 048
     Dates: start: 20140218, end: 20140811

REACTIONS (2)
  - Gynaecomastia [Unknown]
  - Emotional distress [Unknown]
